FAERS Safety Report 18812561 (Version 1)
Quarter: 2021Q1

REPORT INFORMATION
  Report Type: Report from Study
  Country: EG (occurrence: EG)
  Receive Date: 20210130
  Receipt Date: 20210130
  Transmission Date: 20210419
  Serious: Yes (Other)
  Sender: FDA-Public Use
  Company Number: NVSC2021EG012154

PATIENT
  Age: 64 Year
  Sex: Female

DRUGS (2)
  1. FEMARA [Suspect]
     Active Substance: LETROZOLE
     Indication: BREAST CANCER METASTATIC
     Dosage: 1 DF, QD
     Route: 048
     Dates: start: 202002
  2. KISQALI [Suspect]
     Active Substance: RIBOCICLIB
     Indication: BREAST CANCER METASTATIC
     Dosage: 3 DF, QD
     Route: 048
     Dates: start: 202002

REACTIONS (10)
  - Hyperthyroidism [Not Recovered/Not Resolved]
  - Fatigue [Not Recovered/Not Resolved]
  - Movement disorder [Not Recovered/Not Resolved]
  - Anal fissure [Not Recovered/Not Resolved]
  - Oedema peripheral [Recovering/Resolving]
  - Pulmonary oedema [Recovering/Resolving]
  - Constipation [Not Recovered/Not Resolved]
  - Poor quality sleep [Not Recovered/Not Resolved]
  - Pyuria [Not Recovered/Not Resolved]
  - Dysuria [Not Recovered/Not Resolved]

NARRATIVE: CASE EVENT DATE: 202008
